FAERS Safety Report 26058824 (Version 1)
Quarter: 2025Q4

REPORT INFORMATION
  Report Type: Spontaneous
  Country: US (occurrence: US)
  Receive Date: 20251118
  Receipt Date: 20251118
  Transmission Date: 20260118
  Serious: No
  Sender: NEUROCRINE BIOSCIENCES
  Company Number: US-NEUROCRINE BIOSCIENCES INC.-2025NBI14877

PATIENT
  Sex: Male

DRUGS (1)
  1. INGREZZA SPRINKLE [Suspect]
     Active Substance: VALBENAZINE DITOSYLATE
     Indication: Tardive dyskinesia
     Dosage: 40 MILLIGRAM
     Route: 065
     Dates: end: 20251104

REACTIONS (3)
  - Aphasia [Unknown]
  - Dysphagia [Unknown]
  - Tremor [Unknown]
